FAERS Safety Report 12225176 (Version 1)
Quarter: 2016Q1

REPORT INFORMATION
  Report Type: Spontaneous
  Country: US (occurrence: US)
  Receive Date: 20160331
  Receipt Date: 20160331
  Transmission Date: 20160526
  Serious: Yes (Other)
  Sender: FDA-Public Use
  Company Number: US-ACTAVIS-2016-06856

PATIENT
  Age: 81 Year
  Sex: Female

DRUGS (3)
  1. BUPIVACAINE (UNKNOWN) [Suspect]
     Active Substance: BUPIVACAINE
     Indication: ANAESTHESIA PROCEDURE
     Dosage: 25 ML, SINGLE
     Route: 050
  2. FENTANYL UNKNOWN STRENGTH (WATSON LABORATORIES) [Suspect]
     Active Substance: FENTANYL
     Indication: ANAESTHESIA PROCEDURE
     Dosage: 50 ?G, SINGLE
     Route: 065
  3. EPINEPHRINE. [Concomitant]
     Active Substance: EPINEPHRINE
     Indication: ANAESTHESIA PROCEDURE
     Dosage: UNK
     Route: 050

REACTIONS (2)
  - Bundle branch block left [Recovered/Resolved]
  - Toxicity to various agents [Recovered/Resolved]
